FAERS Safety Report 10628985 (Version 1)
Quarter: 2014Q4

REPORT INFORMATION
  Report Type: Spontaneous
  Country: US (occurrence: US)
  Receive Date: 20141205
  Receipt Date: 20141205
  Transmission Date: 20150529
  Serious: No
  Sender: FDA-Public Use
  Company Number: US-BRISTOL-MYERS SQUIBB COMPANY-21526488

PATIENT
  Age: 72 Year
  Sex: Male
  Weight: 75.73 kg

DRUGS (5)
  1. FLOMAX [Concomitant]
     Active Substance: TAMSULOSIN HYDROCHLORIDE
  2. LIPITOR [Concomitant]
     Active Substance: ATORVASTATIN CALCIUM
     Indication: BLOOD CHOLESTEROL
  3. ELIQUIS [Suspect]
     Active Substance: APIXABAN
     Indication: CEREBROVASCULAR ACCIDENT PROPHYLAXIS
  4. MULTAQ [Concomitant]
     Active Substance: DRONEDARONE
     Indication: ARRHYTHMIA
  5. WARFARIN [Suspect]
     Active Substance: WARFARIN
     Indication: ARRHYTHMIA
     Dates: start: 20141016

REACTIONS (4)
  - Confusional state [Recovering/Resolving]
  - Memory impairment [Recovering/Resolving]
  - Tremor [Recovering/Resolving]
  - Nasopharyngitis [Unknown]
